FAERS Safety Report 8459371 (Version 2)
Quarter: 2013Q4

REPORT INFORMATION
  Report Type: Spontaneous
  Country: US (occurrence: US)
  Receive Date: 20120314
  Receipt Date: 20131223
  Transmission Date: 20140711
  Serious: No
  Sender: FDA-Public Use
  Company Number: US-ASTRAZENECA-2011SE66576

PATIENT
  Age: 67 Year
  Sex: Female
  Weight: 47.6 kg

DRUGS (16)
  1. TOPROL XL [Suspect]
     Indication: HYPERTENSION
     Route: 048
  2. TOPROL XL [Suspect]
     Indication: SINUS TACHYCARDIA
     Route: 048
  3. TOPROL XL [Suspect]
     Indication: BLOOD PRESSURE ABNORMAL
     Route: 048
  4. TOPROL XL [Suspect]
     Indication: TACHYCARDIA
     Route: 048
  5. TOPROL XL [Suspect]
     Indication: HYPERTENSION
     Route: 048
  6. TOPROL XL [Suspect]
     Indication: SINUS TACHYCARDIA
     Route: 048
  7. TOPROL XL [Suspect]
     Indication: BLOOD PRESSURE ABNORMAL
     Route: 048
  8. TOPROL XL [Suspect]
     Indication: TACHYCARDIA
     Route: 048
  9. TOPROL XL [Suspect]
     Indication: HYPERTENSION
     Dosage: 25 MG IN THE AM AND 25 MG IN THE PM
     Route: 048
  10. TOPROL XL [Suspect]
     Indication: SINUS TACHYCARDIA
     Dosage: 25 MG IN THE AM AND 25 MG IN THE PM
     Route: 048
  11. TOPROL XL [Suspect]
     Indication: BLOOD PRESSURE ABNORMAL
     Dosage: 25 MG IN THE AM AND 25 MG IN THE PM
     Route: 048
  12. TOPROL XL [Suspect]
     Indication: TACHYCARDIA
     Dosage: 25 MG IN THE AM AND 25 MG IN THE PM
     Route: 048
  13. TOPROL XL [Suspect]
     Indication: HYPERTENSION
     Dosage: 50MG IN THE MORNING AND 25MG AT NIGHT TOTAL DAILY DOSAGE 75MG
     Route: 048
     Dates: start: 201109
  14. TOPROL XL [Suspect]
     Indication: SINUS TACHYCARDIA
     Dosage: 50MG IN THE MORNING AND 25MG AT NIGHT TOTAL DAILY DOSAGE 75MG
     Route: 048
     Dates: start: 201109
  15. TOPROL XL [Suspect]
     Indication: BLOOD PRESSURE ABNORMAL
     Dosage: 50MG IN THE MORNING AND 25MG AT NIGHT TOTAL DAILY DOSAGE 75MG
     Route: 048
     Dates: start: 201109
  16. TOPROL XL [Suspect]
     Indication: TACHYCARDIA
     Dosage: 50MG IN THE MORNING AND 25MG AT NIGHT TOTAL DAILY DOSAGE 75MG
     Route: 048
     Dates: start: 201109

REACTIONS (4)
  - Cough [Unknown]
  - Diplopia [Unknown]
  - Off label use [Unknown]
  - Off label use [Unknown]
